FAERS Safety Report 24125977 (Version 1)
Quarter: 2024Q3

REPORT INFORMATION
  Report Type: Spontaneous
  Country: US (occurrence: US)
  Receive Date: 20240723
  Receipt Date: 20240723
  Transmission Date: 20241017
  Serious: No
  Sender: STEMLINE THERAPEUTICS
  Company Number: US-Stemline Therapeutics, Inc.-2024ST003392

PATIENT
  Age: 69 Year
  Sex: Female

DRUGS (4)
  1. ORSERDU [Suspect]
     Active Substance: ELACESTRANT
     Indication: Product used for unknown indication
     Route: 048
     Dates: start: 20230609
  2. FLONASE ALLERGY RELIEF [Concomitant]
     Active Substance: FLUTICASONE PROPIONATE
     Indication: Product used for unknown indication
  3. COZAAR [Concomitant]
     Active Substance: LOSARTAN POTASSIUM
     Indication: Product used for unknown indication
  4. ANTIVERT [Concomitant]
     Active Substance: MECLIZINE HYDROCHLORIDE
     Indication: Product used for unknown indication

REACTIONS (2)
  - Fatigue [Recovering/Resolving]
  - Disease progression [Unknown]
